FAERS Safety Report 4788525-0 (Version None)
Quarter: 2005Q3

REPORT INFORMATION
  Report Type: 
  Country: None (occurrence: None)
  Receive Date: 20050915
  Receipt Date: 20050518
  Transmission Date: 20060218
  Serious: No
  Sender: FDA-Public Use
  Company Number: BDI-007211

PATIENT
  Age: 54 Year
  Sex: Female

DRUGS (4)
  1. MULTIHANCE [Suspect]
     Indication: DIZZINESS
     Dosage: 14 ML ONCE IV
     Route: 042
     Dates: start: 20050517, end: 20050517
  2. MULTIHANCE [Suspect]
     Indication: NUCLEAR MAGNETIC RESONANCE IMAGING BRAIN
     Dosage: 14 ML ONCE IV
     Route: 042
     Dates: start: 20050517, end: 20050517
  3. MULTIHANCE [Suspect]
     Indication: DIZZINESS
     Dosage: IV
     Route: 042
     Dates: start: 20050517, end: 20050517
  4. MULTIHANCE [Suspect]
     Indication: NUCLEAR MAGNETIC RESONANCE IMAGING BRAIN
     Dosage: IV
     Route: 042
     Dates: start: 20050517, end: 20050517

REACTIONS (4)
  - EYE SWELLING [None]
  - LACRIMATION INCREASED [None]
  - OCULAR HYPERAEMIA [None]
  - RETCHING [None]
